FAERS Safety Report 10261893 (Version 2)
Quarter: 2014Q2

REPORT INFORMATION
  Report Type: Report from Study
  Country: IT (occurrence: IT)
  Receive Date: 20140626
  Receipt Date: 20140626
  Transmission Date: 20141212
  Serious: Yes (Hospitalization)
  Sender: FDA-Public Use
  Company Number: PHHY2014IT068732

PATIENT
  Age: 68 Year
  Sex: Male

DRUGS (2)
  1. CERTICAN [Suspect]
     Indication: RENAL TRANSPLANT
     Dosage: 1.5 MG, UNK
     Route: 048
     Dates: start: 20060930
  2. SANDIMMUNE NEORAL [Suspect]
     Indication: RENAL TRANSPLANT
     Dosage: 100 MG, DAILY
     Route: 048
     Dates: start: 20060930, end: 20100702

REACTIONS (3)
  - Laryngeal cancer [Recovered/Resolved]
  - Dysphonia [Recovered/Resolved]
  - Pharyngitis [Recovered/Resolved]
